FAERS Safety Report 18999870 (Version 1)
Quarter: 2021Q1

REPORT INFORMATION
  Report Type: Spontaneous
  Country: DE (occurrence: DE)
  Receive Date: 20210312
  Receipt Date: 20210312
  Transmission Date: 20210420
  Serious: Yes (Life-Threatening, Hospitalization, Other)
  Sender: FDA-Public Use
  Company Number: DE-AUROBINDO-AUR-APL-2021-009622

PATIENT
  Age: 28 Year
  Sex: Male

DRUGS (3)
  1. CLOZAPINE 100 MG TABLETS [Suspect]
     Active Substance: CLOZAPINE
     Indication: SCHIZOPHRENIA
     Dosage: 8 GRAM, (100 MG/TABLET, TOTAL, 8 DEPLETED BLISTERS OF CLOZAPINE)
     Route: 048
  2. CLOZAPINE 100 MG TABLETS [Suspect]
     Active Substance: CLOZAPINE
     Dosage: 900 MILLIGRAM, ONCE A DAY
     Route: 048
  3. CLOZAPINE 100 MG TABLETS [Suspect]
     Active Substance: CLOZAPINE
     Dosage: 80 DOSAGE FORM, 1 TOTAL, 8 DEPLETED BLISTERS OF CLOZAPINE
     Route: 048

REACTIONS (22)
  - Pneumonia [Recovered/Resolved]
  - Acute kidney injury [Recovered/Resolved]
  - Hypertension [Recovered/Resolved]
  - Somnolence [Recovered/Resolved]
  - Communication disorder [Recovered/Resolved]
  - Respiratory failure [Recovered/Resolved]
  - Anticholinergic syndrome [Recovered/Resolved]
  - Crush syndrome [Recovered/Resolved]
  - Sinus tachycardia [Recovered/Resolved]
  - Intentional overdose [Recovered/Resolved]
  - Aptyalism [Recovered/Resolved]
  - Hyperventilation [Recovered/Resolved]
  - Emphysema [Recovered/Resolved]
  - Toxicity to various agents [Recovered/Resolved]
  - Altered state of consciousness [Recovered/Resolved]
  - Disturbance in attention [Recovered/Resolved]
  - Atelectasis [Recovered/Resolved]
  - Sepsis [Recovered/Resolved]
  - Pneumomediastinum [Recovered/Resolved]
  - Rhabdomyolysis [Recovered/Resolved]
  - Septic shock [Recovered/Resolved]
  - Hyperhidrosis [Recovered/Resolved]
